FAERS Safety Report 5144296-X (Version None)
Quarter: 2006Q4

REPORT INFORMATION
  Report Type: 
  Country: None (occurrence: None)
  Receive Date: 20061030
  Receipt Date: 20061017
  Transmission Date: 20070319
  Serious: Yes (Other)
  Sender: FDA-Public Use
  Company Number: US200609006130

PATIENT
  Age: 86 Year
  Sex: Female
  Weight: 43.5 kg

DRUGS (6)
  1. FORTEO [Suspect]
     Indication: OSTEOPOROSIS
     Dosage: 20 UG, DAILY (1/D)
     Dates: start: 20060302, end: 20060814
  2. FORTEO [Concomitant]
  3. HYDROCHLOROTHIAZIDE [Concomitant]
  4. ASPIRIN [Concomitant]
  5. PREVACID [Concomitant]
  6. MOBIC [Concomitant]

REACTIONS (12)
  - BLOOD ALBUMIN INCREASED [None]
  - BLOOD AMINO ACID LEVEL INCREASED [None]
  - BLOOD CALCIUM DECREASED [None]
  - BLOOD HOMOCYSTEINE INCREASED [None]
  - GAMMOPATHY [None]
  - HAEMOGLOBIN DECREASED [None]
  - IMMUNOGLOBULINS [None]
  - IMMUNOGLOBULINS DECREASED [None]
  - LABORATORY TEST ABNORMAL [None]
  - MULTIPLE MYELOMA [None]
  - PROTEIN TOTAL DECREASED [None]
  - RED BLOOD CELL COUNT DECREASED [None]
